FAERS Safety Report 8856407 (Version 1)
Quarter: 2012Q4

REPORT INFORMATION
  Report Type: 
  Country: US (occurrence: US)
  Receive Date: 20121023
  Receipt Date: 20121023
  Transmission Date: 20130627
  Serious: No
  Sender: FDA-Public Use
  Company Number: US-AMGEN-USASP2012057103

PATIENT
  Age: 39 Year
  Sex: Female

DRUGS (3)
  1. ENBREL [Suspect]
     Indication: RHEUMATOID ARTHRITIS
     Dosage: 50 mg twice monthly
     Route: 058
     Dates: start: 20100309
  2. ENBREL [Suspect]
     Indication: PSORIASIS
  3. SIMPONI [Concomitant]
     Dosage: UNK

REACTIONS (9)
  - Drug hypersensitivity [Recovered/Resolved]
  - Urticaria [Recovered/Resolved]
  - Rheumatoid arthritis [Recovered/Resolved]
  - Injection site reaction [Recovered/Resolved]
  - Injection site erythema [Recovered/Resolved]
  - Injection site induration [Recovered/Resolved]
  - Injection site warmth [Recovered/Resolved]
  - Injection site pain [Recovered/Resolved]
  - Psoriasis [Recovered/Resolved]
